FAERS Safety Report 13320386 (Version 1)
Quarter: 2017Q1

REPORT INFORMATION
  Report Type: Spontaneous
  Country: US (occurrence: US)
  Receive Date: 20170309
  Receipt Date: 20170309
  Transmission Date: 20170428
  Serious: Yes (Hospitalization)
  Sender: FDA-Public Use
  Company Number: US-BION-006078

PATIENT
  Age: 80 Year
  Sex: Male

DRUGS (1)
  1. LOPERAMIDE SOFTGELS 24CT [Suspect]
     Active Substance: LOPERAMIDE HYDROCHLORIDE
     Indication: DIARRHOEA
     Dosage: STRENGTH: 2 MG, 1 SOFTGEL?FREQUENCY: TWICE
     Route: 048
     Dates: start: 20170219, end: 20170219

REACTIONS (4)
  - Dyspnoea [Recovered/Resolved]
  - Constipation [Recovered/Resolved]
  - Abdominal distension [Recovered/Resolved]
  - Incorrect dosage administered [Not Recovered/Not Resolved]

NARRATIVE: CASE EVENT DATE: 20170219
